FAERS Safety Report 13606089 (Version 1)
Quarter: 2017Q2

REPORT INFORMATION
  Report Type: Spontaneous
  Country: US (occurrence: US)
  Receive Date: 20170602
  Receipt Date: 20170602
  Transmission Date: 20170830
  Serious: No
  Sender: FDA-Public Use
  Company Number: None

PATIENT
  Age: 74 Year
  Sex: Female
  Weight: 78.54 kg

DRUGS (16)
  1. VITAMIN B12 [Concomitant]
     Active Substance: CYANOCOBALAMIN
  2. CELEBREX [Concomitant]
     Active Substance: CELECOXIB
  3. BENICAR [Concomitant]
     Active Substance: OLMESARTAN MEDOXOMIL
  4. VITAMIN C [Concomitant]
     Active Substance: ASCORBIC ACID
  5. MULTIPEEL [Concomitant]
  6. TROPAL [Concomitant]
  7. PREVACID SOLUTABS [Concomitant]
  8. RECLAST [Suspect]
     Active Substance: ZOLEDRONIC ACID
     Indication: OSTEOPOROSIS
     Dosage: 1 DOSAGE IV ONCE/YEAR IV
     Route: 042
     Dates: start: 20170504
  9. VYTORIN [Concomitant]
     Active Substance: EZETIMIBE\SIMVASTATIN
  10. MIRALAX [Concomitant]
     Active Substance: POLYETHYLENE GLYCOL 3350
  11. NORCO [Concomitant]
     Active Substance: ACETAMINOPHEN\HYDROCODONE BITARTRATE
  12. PREMARIN VAGINAL [Concomitant]
     Active Substance: ESTROGENS, CONJUGATED
  13. VITAMIN D [Concomitant]
     Active Substance: CHOLECALCIFEROL
  14. HUMALOG [Concomitant]
     Active Substance: INSULIN LISPRO
  15. LANTUS [Concomitant]
     Active Substance: INSULIN GLARGINE
  16. CALCIUM [Concomitant]
     Active Substance: CALCIUM

REACTIONS (10)
  - Bone pain [None]
  - Abdominal pain upper [None]
  - Diarrhoea [None]
  - Malaise [None]
  - Mobility decreased [None]
  - Pollakiuria [None]
  - Musculoskeletal chest pain [None]
  - Lethargy [None]
  - Fatigue [None]
  - Painful respiration [None]

NARRATIVE: CASE EVENT DATE: 20170505
